FAERS Safety Report 8113759-7 (Version None)
Quarter: 2012Q1

REPORT INFORMATION
  Report Type: 
  Country: None (occurrence: None)
  Receive Date: 20120203
  Receipt Date: 20120127
  Transmission Date: 20120608
  Serious: Yes (Other)
  Sender: FDA-Public Use
  Company Number: RU-ABBOTT-12P-251-0897039-00

PATIENT
  Age: 8 Year
  Sex: Female

DRUGS (2)
  1. DEPAKENE [Suspect]
     Route: 048
     Dates: start: 20120120
  2. DEPAKENE [Suspect]
     Indication: EPILEPSY
     Dosage: EXTENDED RELEASE, DAILY
     Route: 048
     Dates: start: 20120116, end: 20120118

REACTIONS (4)
  - HYPERPYREXIA [None]
  - RESPIRATORY TRACT INFECTION [None]
  - PETIT MAL EPILEPSY [None]
  - DRUG INEFFECTIVE [None]
